FAERS Safety Report 7779703-7 (Version None)
Quarter: 2011Q3

REPORT INFORMATION
  Report Type: 
  Country: None (occurrence: None)
  Receive Date: 20110927
  Receipt Date: 20110921
  Transmission Date: 20111222
  Serious: Yes (Other)
  Sender: FDA-Public Use
  Company Number: AT-PFIZER INC-2011225421

PATIENT
  Age: 35 Year
  Sex: Male

DRUGS (5)
  1. ALPRAZOLAM [Suspect]
     Indication: GENERALISED ANXIETY DISORDER
     Dosage: 0.5 MG, 3X/DAY
     Route: 048
     Dates: start: 20060101
  2. CYMBALTA [Suspect]
     Indication: SOMATISATION DISORDER
  3. LYRICA [Suspect]
     Indication: GENERALISED ANXIETY DISORDER
     Dosage: 150 MG, 1X/DAY
     Route: 048
     Dates: start: 20060101
  4. CYMBALTA [Suspect]
     Indication: DEPRESSION
  5. CYMBALTA [Suspect]
     Indication: TENSION HEADACHE
     Dosage: 30 MG DAILY
     Route: 048
     Dates: start: 20060101

REACTIONS (8)
  - DISTURBANCE IN ATTENTION [None]
  - DIZZINESS [None]
  - SLEEP DISORDER [None]
  - DEPRESSION [None]
  - ROAD TRAFFIC ACCIDENT [None]
  - TACHYCARDIA [None]
  - CHEST DISCOMFORT [None]
  - STRESS [None]
